FAERS Safety Report 24532983 (Version 1)
Quarter: 2024Q4

REPORT INFORMATION
  Report Type: Spontaneous
  Country: US (occurrence: US)
  Receive Date: 20241022
  Receipt Date: 20241022
  Transmission Date: 20250115
  Serious: Yes (Other)
  Sender: AMGEN
  Company Number: US-AMGEN-USASP2024208381

PATIENT
  Age: 19 Year
  Sex: Male

DRUGS (6)
  1. ADALIMUMAB [Suspect]
     Active Substance: ADALIMUMAB
     Indication: Acne cystic
     Dosage: UNK
     Route: 065
  2. TRIAMCINOLONE [Concomitant]
     Active Substance: TRIAMCINOLONE
     Indication: Acne cystic
     Dosage: UNK, 0.1%
  3. GENTAMICIN [Concomitant]
     Active Substance: GENTAMICIN
     Indication: Acne cystic
     Dosage: UNK, 0.1%
  4. MUPIROCIN [Concomitant]
     Active Substance: MUPIROCIN
     Indication: Acne cystic
     Dosage: UNK, 0.2%
  5. DOXYCYCLINE [Concomitant]
     Active Substance: DOXYCYCLINE
     Indication: Acne cystic
     Dosage: UNK
     Route: 048
  6. SULFAMETHOXAZOLE\TRIMETHOPRIM [Concomitant]
     Active Substance: SULFAMETHOXAZOLE\TRIMETHOPRIM
     Indication: Acne cystic
     Dosage: UNK
     Route: 048

REACTIONS (6)
  - Aspergillus infection [Recovered/Resolved]
  - Immunosuppression [Unknown]
  - Skin abrasion [Unknown]
  - Fall [Unknown]
  - Joint effusion [Unknown]
  - Off label use [Unknown]
